FAERS Safety Report 4941498-X (Version None)
Quarter: 2006Q1

REPORT INFORMATION
  Report Type: 
  Country: None (occurrence: None)
  Receive Date: 20060313
  Receipt Date: 20060302
  Transmission Date: 20060701
  Serious: Yes (Other)
  Sender: FDA-Public Use
  Company Number: CH-BRISTOL-MYERS SQUIBB COMPANY-13301106

PATIENT
  Age: 39 Year
  Sex: Female

DRUGS (6)
  1. VIDEX [Suspect]
     Indication: HIV INFECTION
     Route: 048
     Dates: end: 20060112
  2. VIREAD [Suspect]
     Indication: HIV INFECTION
     Route: 048
     Dates: start: 20040930, end: 20060111
  3. NORVIR [Suspect]
     Indication: HIV INFECTION
     Route: 048
     Dates: end: 20060112
  4. REYATAZ [Concomitant]
     Route: 048
  5. METHADONE HCL [Concomitant]
     Route: 048
  6. TRIZIVIR [Concomitant]
     Route: 048
     Dates: start: 20060112

REACTIONS (4)
  - GLYCOSURIA [None]
  - HAEMATURIA [None]
  - PROTEINURIA [None]
  - RENAL TUBULAR DISORDER [None]
